FAERS Safety Report 23214318 (Version 1)
Quarter: 2023Q4

REPORT INFORMATION
  Report Type: Spontaneous
  Country: US (occurrence: US)
  Receive Date: 20231121
  Receipt Date: 20231121
  Transmission Date: 20240110
  Serious: No
  Sender: FDA-Public Use
  Company Number: US-PFIZER INC-202300381503

PATIENT
  Sex: Female

DRUGS (1)
  1. CALAN SR [Suspect]
     Active Substance: VERAPAMIL HYDROCHLORIDE
     Indication: Cluster headache
     Dosage: UNK

REACTIONS (3)
  - Epigastric discomfort [Unknown]
  - Off label use [Unknown]
  - Drug effective for unapproved indication [Unknown]
